FAERS Safety Report 8820574 (Version 1)
Quarter: 2012Q4

REPORT INFORMATION
  Report Type: 
  Country: IT (occurrence: IT)
  Receive Date: 20121002
  Receipt Date: 20121002
  Transmission Date: 20130627
  Serious: Yes (Disabling)
  Sender: FDA-Public Use
  Company Number: IT-PFIZER INC-2012232168

PATIENT
  Age: 63 Year
  Sex: Male

DRUGS (6)
  1. CISPLATINO TEVA [Suspect]
     Indication: GASTRIC CANCER STAGE IV
     Dosage: 40 mg/cyclical (0. 5 mg/ml,Cyclical)
     Route: 040
     Dates: start: 20120517, end: 20120605
  2. FLUOROURACIL ^TEVA^ [Concomitant]
     Dosage: 250 mg/5 ml solution for infusion (50 mg/ml), 800 mg
     Route: 040
     Dates: start: 20120517, end: 20120809
  3. LEDERFOLIN [Concomitant]
     Dosage: 40 mg (25 mg)
     Dates: start: 20120517, end: 20120809
  4. HERCEPTIN [Concomitant]
     Dosage: 350 mg (150 mg)
     Dates: start: 20120517, end: 20120809
  5. PLASIL [Concomitant]
     Dosage: 10 mg/2 ml solution for injection 1 dosage unit (5 mg/ml)
     Route: 042
     Dates: start: 20120517, end: 20120809
  6. DESAMETASONE FOSFATO HOSPIRA [Concomitant]
     Dosage: 8 mg/2 ml solution for injection (4 mg/ml)
     Route: 041
     Dates: start: 20120517, end: 20120809

REACTIONS (2)
  - Gait disturbance [Not Recovered/Not Resolved]
  - Neuropathy peripheral [Not Recovered/Not Resolved]
